FAERS Safety Report 9813761 (Version 1)
Quarter: 2014Q1

REPORT INFORMATION
  Report Type: Spontaneous
  Country: US (occurrence: US)
  Receive Date: 20140113
  Receipt Date: 20140113
  Transmission Date: 20141002
  Serious: Yes (Hospitalization)
  Sender: FDA-Public Use
  Company Number: US-UCBSA-107918

PATIENT
  Sex: Female
  Weight: 46.2 kg

DRUGS (7)
  1. LORTAB [Suspect]
     Indication: MIGRAINE
  2. ZOLOFT [Suspect]
     Indication: DEPRESSION
     Dosage: 100MG DAILY
     Dates: start: 2003, end: 2013
  3. ZOLOFT [Suspect]
     Indication: POST-TRAUMATIC STRESS DISORDER
     Dosage: 100MG DAILY
     Dates: start: 2003, end: 2013
  4. ABILIFY [Suspect]
     Indication: MANIA
  5. HYDROCHLOROT [Suspect]
     Indication: HYPERTENSION
     Dosage: 25MG DAILY
  6. ZANTAC [Suspect]
     Indication: MIGRAINE
  7. BUTALBITAL/ASPIRIN/CAFFEINE [Suspect]
     Indication: MIGRAINE

REACTIONS (5)
  - Drug ineffective [Recovered/Resolved]
  - Mania [Unknown]
  - Feeling abnormal [Unknown]
  - Pain in extremity [Unknown]
  - Malaise [Unknown]
